FAERS Safety Report 8462247 (Version 8)
Quarter: 2013Q2

REPORT INFORMATION
  Report Type: Spontaneous
  Country: US (occurrence: US)
  Receive Date: 20120316
  Receipt Date: 20130610
  Transmission Date: 20140414
  Serious: Yes (Hospitalization)
  Sender: FDA-Public Use
  Company Number: US-BIOGENIDEC-2012BI008650

PATIENT
  Age: 63 Year
  Sex: Female

DRUGS (15)
  1. TYSABRI [Suspect]
     Indication: MULTIPLE SCLEROSIS
     Route: 042
     Dates: start: 20050121, end: 20050301
  2. TYSABRI [Suspect]
     Indication: MULTIPLE SCLEROSIS
     Route: 042
     Dates: start: 20061018, end: 20120917
  3. AVONEX [Concomitant]
     Indication: MULTIPLE SCLEROSIS
     Route: 030
     Dates: start: 20030220, end: 20030520
  4. AVONEX [Concomitant]
     Indication: MULTIPLE SCLEROSIS
     Route: 030
  5. EVISTA [Concomitant]
     Route: 048
  6. BACLOFEN [Concomitant]
     Route: 048
  7. VALIUM (DIAZEPAM) 10 MG [Concomitant]
     Route: 048
  8. ZOLOFT [Concomitant]
     Route: 048
  9. AMANTADINE [Concomitant]
     Route: 048
  10. NEURONTIN [Concomitant]
     Route: 048
  11. PREVACID [Concomitant]
  12. ALLEGRA [Concomitant]
  13. IBUPROPHEN [Concomitant]
  14. DESONIDE [Concomitant]
  15. DEXADRINE [Concomitant]
     Indication: FATIGUE
     Route: 048

REACTIONS (5)
  - Pneumonia [Recovered/Resolved]
  - Neurodermatitis [Unknown]
  - Urinary tract infection [Unknown]
  - Decreased immune responsiveness [Unknown]
  - Upper respiratory tract infection [Recovered/Resolved]
